FAERS Safety Report 8486879-5 (Version None)
Quarter: 2012Q3

REPORT INFORMATION
  Report Type: 
  Country: None (occurrence: None)
  Receive Date: 20120704
  Receipt Date: 20120625
  Transmission Date: 20120928
  Serious: Yes (Other)
  Sender: FDA-Public Use
  Company Number: FR-BRISTOL-MYERS SQUIBB COMPANY-16719148

PATIENT
  Age: 80 Year
  Sex: Male

DRUGS (3)
  1. AMOXICILLIN [Suspect]
     Indication: OSTEITIS
     Dosage: INITIALLY RECEIVED ON 03-SEP-2011
     Dates: start: 20110913, end: 20111017
  2. CEFEPIME HYDROCHLORIDE [Suspect]
     Indication: OSTEITIS
     Dosage: INITIALLY RECEIVED ON 03-SEP-2011
     Route: 042
     Dates: start: 20110913, end: 20111017
  3. MOXIFLOXACIN HCL [Suspect]
     Indication: OSTEITIS
     Route: 048
     Dates: start: 20110913, end: 20111017

REACTIONS (1)
  - DRUG RASH WITH EOSINOPHILIA AND SYSTEMIC SYMPTOMS [None]
